FAERS Safety Report 9017358 (Version 1)
Quarter: 2013Q1

REPORT INFORMATION
  Report Type: Report from Study
  Country: CA (occurrence: CA)
  Receive Date: 20130117
  Receipt Date: 20130117
  Transmission Date: 20140127
  Serious: Yes (Other)
  Sender: FDA-Public Use
  Company Number: CA-ABBOTT-13P-028-1032650-00

PATIENT
  Age: 64 Year
  Sex: Male
  Weight: 88.08 kg

DRUGS (1)
  1. LUPRON DEPOT [Suspect]
     Indication: PROSTATE CANCER
     Dosage: 3 COURSES
     Route: 030
     Dates: start: 20110911

REACTIONS (2)
  - Metastases to bone [Recovered/Resolved]
  - Prostatic specific antigen increased [Unknown]
